FAERS Safety Report 6645009-2 (Version None)
Quarter: 2010Q1

REPORT INFORMATION
  Report Type: 
  Country: None (occurrence: None)
  Receive Date: 20100322
  Receipt Date: 20100312
  Transmission Date: 20100710
  Serious: Yes (Hospitalization)
  Sender: FDA-Public Use
  Company Number: PHHO2010JP04062

PATIENT
  Sex: Female
  Weight: 49 kg

DRUGS (3)
  1. CGS 20267 T30748+TAB [Suspect]
     Indication: BREAST CANCER
     Dosage: 2.5 MG, QD
     Route: 048
     Dates: start: 20070717
  2. ALENDRONATE SODIUM [Concomitant]
  3. ALFACALCIDOL [Concomitant]

REACTIONS (3)
  - COLONIC POLYP [None]
  - CONSTIPATION [None]
  - GASTROINTESTINAL SURGERY [None]
